FAERS Safety Report 5663922-X (Version None)
Quarter: 2008Q1

REPORT INFORMATION
  Report Type: 
  Country: None (occurrence: None)
  Receive Date: 20080311
  Receipt Date: 20080212
  Transmission Date: 20080703
  Serious: Yes (Other)
  Sender: FDA-Public Use
  Company Number: E2090-00366-SPO-DE

PATIENT
  Age: 48 Year
  Sex: Male
  Weight: 80 kg

DRUGS (5)
  1. ZONEGRAN [Suspect]
     Indication: EPILEPSY
     Dosage: 250 MG, ORAL
     Route: 048
     Dates: start: 20070301
  2. PROTAPHANE (INSULIN HUMAN) [Suspect]
     Indication: TYPE 1 DIABETES MELLITUS
     Dosage: 3-4 I.E., SUBCUATANEOUS
     Route: 058
  3. KEPPRA [Concomitant]
  4. TRILEPTAL [Concomitant]
  5. NOVORAPID (INSULIN ASPARTAT) [Concomitant]

REACTIONS (2)
  - BLOOD GLUCOSE INCREASED [None]
  - DRUG INTERACTION [None]
